FAERS Safety Report 4836966-5 (Version None)
Quarter: 2005Q4

REPORT INFORMATION
  Report Type: 
  Country: None (occurrence: None)
  Receive Date: 20051121
  Receipt Date: 20051109
  Transmission Date: 20060501
  Serious: Yes (Other)
  Sender: FDA-Public Use
  Company Number: ZA-GDP-0512175

PATIENT
  Age: 35 Year
  Sex: Female
  Weight: 58 kg

DRUGS (2)
  1. DIFFERIN [Suspect]
     Indication: ACNE
     Dates: start: 20041103, end: 20041201
  2. INDERAL LA [Concomitant]

REACTIONS (2)
  - ABORTION SPONTANEOUS [None]
  - DRUG EXPOSURE DURING PREGNANCY [None]
